FAERS Safety Report 16826109 (Version 4)
Quarter: 2025Q2

REPORT INFORMATION
  Report Type: Report from Study
  Country: CN (occurrence: CN)
  Receive Date: 20190919
  Receipt Date: 20250512
  Transmission Date: 20250716
  Serious: Yes (Other)
  Sender: ROCHE
  Company Number: CN-ROCHE-1731999

PATIENT
  Age: 77 Year
  Sex: Female
  Weight: 50.0 kg

DRUGS (1)
  1. AVASTIN [Suspect]
     Active Substance: BEVACIZUMAB
     Indication: Rectal cancer
     Route: 042
     Dates: start: 20151107

REACTIONS (8)
  - Ear haemorrhage [Unknown]
  - Epistaxis [Unknown]
  - Lung disorder [Unknown]
  - Immunodeficiency [Unknown]
  - Asthenia [Unknown]
  - Deafness [Unknown]
  - Lung neoplasm [Not Recovered/Not Resolved]
  - General physical health deterioration [Unknown]

NARRATIVE: CASE EVENT DATE: 20200622
